FAERS Safety Report 8530762-3 (Version None)
Quarter: 2012Q3

REPORT INFORMATION
  Report Type: 
  Country: None (occurrence: None)
  Receive Date: 20120723
  Receipt Date: 20120718
  Transmission Date: 20120928
  Serious: Yes (Death, Hospitalization)
  Sender: FDA-Public Use
  Company Number: US-ROCHE-1016520

PATIENT
  Sex: Female
  Weight: 93.6 kg

DRUGS (6)
  1. XELODA [Suspect]
     Route: 048
     Dates: start: 20120521
  2. TAXOTERE [Concomitant]
     Dosage: LAST DOSE: 10/OCT/2011
     Route: 042
  3. LASIX [Concomitant]
  4. ALDACTONE [Concomitant]
  5. XELODA [Suspect]
     Indication: BREAST CANCER METASTATIC
     Route: 048
     Dates: start: 20110825, end: 20110918
  6. POTASSIUM CHLORIDE [Concomitant]
     Dosage: 20 MEQ
     Route: 048

REACTIONS (6)
  - HYPOKALAEMIA [None]
  - DEATH [None]
  - DECREASED APPETITE [None]
  - OEDEMA PERIPHERAL [None]
  - AGEUSIA [None]
  - PALMAR-PLANTAR ERYTHRODYSAESTHESIA SYNDROME [None]
